FAERS Safety Report 23436710 (Version 2)
Quarter: 2024Q1

REPORT INFORMATION
  Report Type: Spontaneous
  Country: US (occurrence: None)
  Receive Date: 20240124
  Receipt Date: 20240212
  Transmission Date: 20240410
  Serious: Yes (Hospitalization, Other)
  Sender: FDA-Public Use
  Company Number: US-Unichem Pharmaceuticals (USA) Inc-UCM202401-000041

PATIENT
  Age: 53 Year
  Sex: Female

DRUGS (5)
  1. CLONIDINE HYDROCHLORIDE [Suspect]
     Active Substance: CLONIDINE HYDROCHLORIDE
     Indication: Product used for unknown indication
     Dosage: ~ 6 MG
  2. QUETIAPINE [Suspect]
     Active Substance: QUETIAPINE
     Indication: Product used for unknown indication
     Dosage: ~ 6 G
  3. FLUOXETINE [Suspect]
     Active Substance: FLUOXETINE HYDROCHLORIDE
     Indication: Product used for unknown indication
     Dosage: 1.2 G
  4. GABAPENTIN [Suspect]
     Active Substance: GABAPENTIN
     Indication: Product used for unknown indication
     Dosage: ~ 9 G
  5. BUPROPION [Suspect]
     Active Substance: BUPROPION
     Indication: Product used for unknown indication
     Dosage: ~ 13.5 G

REACTIONS (13)
  - Cardiovascular disorder [Recovering/Resolving]
  - Acute respiratory distress syndrome [Recovering/Resolving]
  - Haemodynamic instability [Recovering/Resolving]
  - Electrolyte imbalance [Recovering/Resolving]
  - Respiratory failure [Recovering/Resolving]
  - Condition aggravated [Recovering/Resolving]
  - Speech disorder [Unknown]
  - Acidosis [Recovering/Resolving]
  - Seizure [Recovering/Resolving]
  - Electrocardiogram QT prolonged [Recovering/Resolving]
  - Agitation [Unknown]
  - Intentional overdose [Unknown]
  - Toxicity to various agents [Unknown]
